FAERS Safety Report 17245258 (Version 2)
Quarter: 2022Q1

REPORT INFORMATION
  Report Type: Spontaneous
  Country: BR (occurrence: BR)
  Receive Date: 20200108
  Receipt Date: 20220331
  Transmission Date: 20220423
  Serious: Yes (Other)
  Sender: FDA-Public Use
  Company Number: BR-TEVA-2020-BR-1165330

PATIENT
  Age: 60 Year
  Sex: Male

DRUGS (2)
  1. OXALIPLATIN [Suspect]
     Active Substance: OXALIPLATIN
     Dosage: 1ST CHEMOTHERAPY CYCLE (198.9 MG FOR 2 HOURS (THROUGH CONTINUOUS INFUSION PUMP))
     Dates: start: 20190506
  2. OLANZAPINE [Concomitant]
     Active Substance: OLANZAPINE

REACTIONS (6)
  - Choking sensation [Unknown]
  - Suffocation feeling [Unknown]
  - Neuropathy peripheral [Unknown]
  - Flushing [Unknown]
  - Paraesthesia [Unknown]
  - Blood pressure fluctuation [Recovered/Resolved]

NARRATIVE: CASE EVENT DATE: 20190506
